FAERS Safety Report 14908794 (Version 1)
Quarter: 2018Q2

REPORT INFORMATION
  Report Type: Spontaneous
  Country: HR (occurrence: HR)
  Receive Date: 20180517
  Receipt Date: 20180517
  Transmission Date: 20180711
  Serious: Yes (Hospitalization)
  Sender: FDA-Public Use
  Company Number: PHHY2018HR006679

PATIENT
  Sex: Male

DRUGS (13)
  1. DECORTIN [Suspect]
     Active Substance: PREDNISONE
     Indication: POLYARTHRITIS
     Dosage: 10 MG, UNK
     Route: 065
  2. LEFLUNOMIDE. [Suspect]
     Active Substance: LEFLUNOMIDE
     Dosage: 20 MG, SSZ 2X2
     Route: 065
  3. EBETREXAT [Suspect]
     Active Substance: METHOTREXATE SODIUM
     Indication: POLYARTHRITIS
     Dosage: 15 MG, UNK
     Route: 058
  4. INFLIXIMAB [Suspect]
     Active Substance: INFLIXIMAB
     Indication: POLYARTHRITIS
     Dosage: 5 MG/KG, EVERY 8 WEEKS
     Route: 042
  5. SULPHASALAZINE [Suspect]
     Active Substance: SULFASALAZINE
     Indication: POLYARTHRITIS
     Dosage: 2X2 TBL
     Route: 065
  6. METHOTREXATE. [Suspect]
     Active Substance: METHOTREXATE
     Dosage: 20 MG, QW
     Route: 065
  7. LEFLUNOMIDE. [Suspect]
     Active Substance: LEFLUNOMIDE
     Indication: POLYARTHRITIS
     Dosage: 20 MG, QD
     Route: 065
  8. METHOTREXATE. [Suspect]
     Active Substance: METHOTREXATE
     Indication: POLYARTHRITIS
     Dosage: 15 MG, QW
     Route: 048
  9. DECORTIN [Suspect]
     Active Substance: PREDNISONE
     Dosage: 15 MG, UNK
     Route: 065
  10. DECORTIN [Suspect]
     Active Substance: PREDNISONE
     Dosage: 30 MG, UNK
     Route: 065
  11. DECORTIN [Suspect]
     Active Substance: PREDNISONE
     Dosage: 20 MG, QD
     Route: 065
  12. FOLACIN [Suspect]
     Active Substance: FOLIC ACID
     Indication: POLYARTHRITIS
     Dosage: 10 MG, QD
     Route: 065
  13. CIMZIA [Suspect]
     Active Substance: CERTOLIZUMAB PEGOL
     Indication: POLYARTHRITIS
     Dosage: UNK
     Route: 065
     Dates: start: 201602, end: 201605

REACTIONS (11)
  - Crying [Unknown]
  - Pain [Recovered/Resolved]
  - Musculoskeletal stiffness [Recovered/Resolved]
  - Inflammatory marker increased [Recovering/Resolving]
  - Depression [Recovered/Resolved]
  - Dermatitis psoriasiform [Recovering/Resolving]
  - Spondylitis [Recovering/Resolving]
  - Disease progression [Recovered/Resolved]
  - Joint contracture [Recovering/Resolving]
  - General physical health deterioration [Unknown]
  - Sacroiliitis [Recovering/Resolving]

NARRATIVE: CASE EVENT DATE: 20170123
